FAERS Safety Report 5844199-9 (Version None)
Quarter: 2008Q3

REPORT INFORMATION
  Report Type: 
  Country: None (occurrence: None)
  Receive Date: 20080813
  Receipt Date: 20080804
  Transmission Date: 20090109
  Serious: Yes (Other)
  Sender: FDA-Public Use
  Company Number: US-PFIZER INC-2008065109

PATIENT
  Sex: Female
  Weight: 56.7 kg

DRUGS (1)
  1. DEPO-ESTRADIOL [Suspect]
     Indication: HORMONE REPLACEMENT THERAPY
     Dates: start: 20080709, end: 20080709

REACTIONS (1)
  - INJECTION SITE ABSCESS [None]
